FAERS Safety Report 5836018-1 (Version None)
Quarter: 2008Q3

REPORT INFORMATION
  Report Type: 
  Country: None (occurrence: None)
  Receive Date: 20080805
  Receipt Date: 20080722
  Transmission Date: 20090109
  Serious: Yes (Other)
  Sender: FDA-Public Use
  Company Number: 2008S1003968

PATIENT
  Sex: Female

DRUGS (5)
  1. FUROSEMIDE (FUROSEMIDE) [Suspect]
     Indication: DRUG USE FOR UNKNOWN INDICATION
     Dosage: 80 MG; TWICE A DAY;
  2. ASPIRIN [Suspect]
     Indication: DRUG USE FOR UNKNOWN INDICATION
  3. PREDNISOLONE TAB [Suspect]
     Indication: ASTHMA
  4. SALBUTAMOL (SALBUTAMOL) [Suspect]
     Indication: ASTHMA
  5. ENOXAPARIN SODIUM [Suspect]
     Indication: DRUG USE FOR UNKNOWN INDICATION

REACTIONS (26)
  - AKINESIA [None]
  - ANXIETY [None]
  - BLOOD PRESSURE DIASTOLIC DECREASED [None]
  - BUNDLE BRANCH BLOCK [None]
  - CAESAREAN SECTION [None]
  - CARDIAC DISORDER [None]
  - CARDIOMEGALY [None]
  - CHEST PAIN [None]
  - COUGH [None]
  - DILATATION VENTRICULAR [None]
  - DRUG EXPOSURE DURING PREGNANCY [None]
  - DYSKINESIA [None]
  - EJECTION FRACTION DECREASED [None]
  - ELECTROCARDIOGRAM QRS COMPLEX PROLONGED [None]
  - EMOTIONAL DISTRESS [None]
  - HEART TRANSPLANT [None]
  - INTRACARDIAC THROMBUS [None]
  - MITRAL VALVE INCOMPETENCE [None]
  - OEDEMA PERIPHERAL [None]
  - PERIPARTUM CARDIOMYOPATHY [None]
  - QRS AXIS ABNORMAL [None]
  - SINUS RHYTHM [None]
  - TACHYCARDIA [None]
  - THROMBOSIS [None]
  - TRICUSPID VALVE INCOMPETENCE [None]
  - VENTRICULAR DYSFUNCTION [None]
